FAERS Safety Report 11777114 (Version 2)
Quarter: 2015Q4

REPORT INFORMATION
  Report Type: Spontaneous
  Country: IT (occurrence: IT)
  Receive Date: 20151125
  Receipt Date: 20151204
  Transmission Date: 20160304
  Serious: Yes (Hospitalization)
  Sender: FDA-Public Use
  Company Number: IT-SUN PHARMACEUTICAL INDUSTRIES LTD-2015RR-106539

PATIENT

DRUGS (2)
  1. LEPONEX [Suspect]
     Active Substance: CLOZAPINE
     Indication: DRUG ABUSE
     Dosage: 12 DF, SINGLE
     Route: 048
     Dates: start: 20151030, end: 20151030
  2. LORAZEPAM. [Suspect]
     Active Substance: LORAZEPAM
     Indication: DRUG ABUSE
     Dosage: 3 DF, SINGLE
     Route: 048
     Dates: start: 20151030, end: 20151030

REACTIONS (3)
  - Urinary incontinence [Unknown]
  - Drug abuse [Unknown]
  - Epilepsy [Unknown]

NARRATIVE: CASE EVENT DATE: 19850125
